FAERS Safety Report 9498202 (Version 3)
Quarter: 2014Q3

REPORT INFORMATION
  Report Type: Spontaneous
  Country: US (occurrence: US)
  Receive Date: 20130904
  Receipt Date: 20140725
  Transmission Date: 20150326
  Serious: Yes (Other)
  Sender: FDA-Public Use
  Company Number: US-BAYER-2013-105734

PATIENT
  Age: 24 Year
  Sex: Female
  Weight: 61.22 kg

DRUGS (1)
  1. MIRENA [Suspect]
     Active Substance: LEVONORGESTREL
     Dosage: 20 MCG/24HR, CONT
     Route: 015
     Dates: start: 20070703

REACTIONS (10)
  - Pregnancy with contraceptive device [None]
  - Anxiety [None]
  - Uterine perforation [None]
  - Injury [None]
  - Dyspareunia [None]
  - Drug ineffective [None]
  - Device issue [None]
  - Infection [None]
  - Medical device pain [None]
  - Abdominal pain [None]
